FAERS Safety Report 12981696 (Version 1)
Quarter: 2016Q4

REPORT INFORMATION
  Report Type: Spontaneous
  Country: US (occurrence: US)
  Receive Date: 20161123
  Receipt Date: 20161123
  Transmission Date: 20170207
  Serious: Yes (Life-Threatening, Hospitalization)
  Sender: FDA-Public Use
  Company Number: None

PATIENT
  Age: 85 Year
  Sex: Male
  Weight: 91.4 kg

DRUGS (2)
  1. WARFARIN [Suspect]
     Active Substance: WARFARIN
     Indication: MITRAL VALVE INCOMPETENCE
     Route: 048
     Dates: end: 20160706
  2. WARFARIN [Suspect]
     Active Substance: WARFARIN
     Indication: ATRIAL FIBRILLATION
     Route: 048
     Dates: end: 20160706

REACTIONS (4)
  - Haemorrhage intracranial [None]
  - Transient ischaemic attack [None]
  - Cerebrovascular accident [None]
  - Haemorrhage [None]

NARRATIVE: CASE EVENT DATE: 20160719
